FAERS Safety Report 6410593-0 (Version None)
Quarter: 2009Q4

REPORT INFORMATION
  Report Type: 
  Country: None (occurrence: None)
  Receive Date: 20091022
  Receipt Date: 20091012
  Transmission Date: 20100525
  Serious: Yes (Hospitalization, Other)
  Sender: FDA-Public Use
  Company Number: US-BIOGENIDEC-2006BI014945

PATIENT
  Age: 39 Year
  Sex: Male
  Weight: 99 kg

DRUGS (2)
  1. AVONEX [Suspect]
     Indication: MULTIPLE SCLEROSIS
     Route: 030
     Dates: start: 20060601, end: 20060811
  2. AVONEX [Suspect]
     Route: 030
     Dates: start: 20060901

REACTIONS (5)
  - DEPRESSED MOOD [None]
  - INTERVERTEBRAL DISC PROTRUSION [None]
  - POSTOPERATIVE ABSCESS [None]
  - STAPHYLOCOCCAL INFECTION [None]
  - WEIGHT INCREASED [None]
